FAERS Safety Report 6076516-1 (Version None)
Quarter: 2009Q1

REPORT INFORMATION
  Report Type: 
  Country: None (occurrence: None)
  Receive Date: 20090213
  Receipt Date: 20090113
  Transmission Date: 20090719
  Serious: No
  Sender: FDA-Public Use
  Company Number: US-BAYER-200840424NA

PATIENT
  Age: 68 Year
  Sex: Male

DRUGS (4)
  1. LEVITRA [Suspect]
     Indication: ERECTILE DYSFUNCTION
     Dosage: TOTAL DAILY DOSE: 30 MG  UNIT DOSE: 20 MG
     Route: 048
     Dates: start: 20080101
  2. NEXIUM [Concomitant]
  3. LOTREL [Concomitant]
  4. VITAMINS NOS [Concomitant]

REACTIONS (1)
  - ERECTILE DYSFUNCTION [None]
